FAERS Safety Report 7680012-5 (Version None)
Quarter: 2011Q3

REPORT INFORMATION
  Report Type: 
  Country: None (occurrence: None)
  Receive Date: 20110812
  Receipt Date: 20110804
  Transmission Date: 20111222
  Serious: Yes (Hospitalization, Other)
  Sender: FDA-Public Use
  Company Number: GB-NOVOPROD-329608

PATIENT

DRUGS (7)
  1. ESTRADIOL [Suspect]
     Indication: PRODUCT USED FOR UNKNOWN INDICATION
  2. BENDROFLUAZIDE [Concomitant]
     Indication: PRODUCT USED FOR UNKNOWN INDICATION
  3. VAGIFEM [Suspect]
     Indication: MENOPAUSE
     Dosage: UNK
  4. DIAMORPHINE [Suspect]
     Indication: SPINAL ANAESTHESIA
     Dosage: 300 MCG
  5. VAGIFEM [Suspect]
     Indication: HORMONE REPLACEMENT THERAPY
  6. BUPIVACAINE HCL [Suspect]
     Indication: SPINAL ANAESTHESIA
     Dosage: 2.5 ML OF HEAVY 0.5 %
  7. DEXAMETHASONE [Suspect]
     Indication: PRODUCT USED FOR UNKNOWN INDICATION

REACTIONS (1)
  - MYOCLONUS [None]
